FAERS Safety Report 5262674-5 (Version None)
Quarter: 2007Q1

REPORT INFORMATION
  Report Type: 
  Country: None (occurrence: None)
  Receive Date: 20070312
  Receipt Date: 20070306
  Transmission Date: 20070707
  Serious: Yes (Other)
  Sender: FDA-Public Use
  Company Number: JP-MERCK-0702USA03966

PATIENT
  Age: 50 Year
  Sex: Male
  Weight: 82 kg

DRUGS (3)
  1. PROPECIA [Suspect]
     Route: 048
     Dates: start: 20060124, end: 20070208
  2. PROPECIA [Suspect]
     Route: 048
     Dates: start: 20070209
  3. [THERAPY UNSPECIFIED] [Concomitant]
     Route: 065

REACTIONS (2)
  - EPISTAXIS [None]
  - INAPPROPRIATE SCHEDULE OF DRUG ADMINISTRATION [None]
